FAERS Safety Report 21499184 (Version 3)
Quarter: 2022Q4

REPORT INFORMATION
  Report Type: Report from Study
  Country: HK (occurrence: None)
  Receive Date: 20221024
  Receipt Date: 20221107
  Transmission Date: 20230112
  Serious: Yes (Death)
  Sender: FDA-Public Use
  Company Number: HK-Merck Healthcare KGaA-9360429

PATIENT
  Age: 64 Year
  Sex: Male

DRUGS (2)
  1. TEPOTINIB [Suspect]
     Active Substance: TEPOTINIB
     Indication: Lung neoplasm malignant
     Dosage: THE SUBJECT RECEIVED TOTAL 336 WALLETS BUT TOTAL USED 196 WALLETS OF TEPOTINIB.
     Dates: start: 20220314, end: 20220710
  2. BRIMONIDINE TARTRATE [Concomitant]
     Active Substance: BRIMONIDINE TARTRATE
     Indication: Product used for unknown indication
     Dosage: 1 DROP THREE TIMES DAILY
     Dates: start: 20220531, end: 20220710

REACTIONS (1)
  - Gastrointestinal haemorrhage [Fatal]

NARRATIVE: CASE EVENT DATE: 20220711
